FAERS Safety Report 4651646-7 (Version None)
Quarter: 2005Q2

REPORT INFORMATION
  Report Type: 
  Country: None (occurrence: None)
  Receive Date: 20050404
  Receipt Date: 20041104
  Transmission Date: 20051028
  Serious: No
  Sender: FDA-Public Use
  Company Number: USA041183224

PATIENT
  Sex: Female

DRUGS (12)
  1. CYMBALTA [Suspect]
     Indication: MAJOR DEPRESSION
     Dosage: 60 MG
     Dates: start: 20040915
  2. FOSAMAX [Concomitant]
  3. LIPITOR [Concomitant]
  4. SYNTHROID [Concomitant]
  5. VITAMIN B6 [Concomitant]
  6. VITAMIN B-12 [Concomitant]
  7. FOLIC ACID [Concomitant]
  8. MULTI-VITAMIN [Concomitant]
  9. VITAMIN E [Concomitant]
  10. VIT C TAB [Concomitant]
  11. GARLIC [Concomitant]
  12. CALCIUM GLUCONATE [Concomitant]

REACTIONS (4)
  - BLOOD HOMOCYSTEINE DECREASED [None]
  - DYSKINESIA [None]
  - PAIN [None]
  - PARAESTHESIA [None]
